FAERS Safety Report 25331884 (Version 1)
Quarter: 2025Q2

REPORT INFORMATION
  Report Type: Spontaneous
  Country: IR (occurrence: IR)
  Receive Date: 20250519
  Receipt Date: 20250519
  Transmission Date: 20250717
  Serious: Yes (Other)
  Sender: PURDUE
  Company Number: IR-NAPPMUNDI-GBR-2025-0125680

PATIENT
  Age: 39 Year
  Sex: Male

DRUGS (8)
  1. BUPRENORPHINE [Suspect]
     Active Substance: BUPRENORPHINE
     Indication: Product used for unknown indication
     Route: 055
  2. BUPRENORPHINE [Suspect]
     Active Substance: BUPRENORPHINE
     Route: 060
  3. BUPRENORPHINE [Suspect]
     Active Substance: BUPRENORPHINE
     Route: 055
  4. BUPRENORPHINE [Suspect]
     Active Substance: BUPRENORPHINE
     Indication: Product used for unknown indication
     Route: 055
  5. BUPRENORPHINE [Suspect]
     Active Substance: BUPRENORPHINE
     Route: 060
  6. BUPRENORPHINE [Suspect]
     Active Substance: BUPRENORPHINE
     Route: 055
  7. METHAMPHETAMINE [Concomitant]
     Active Substance: METHAMPHETAMINE
     Indication: Product used for unknown indication
     Route: 055
  8. OPIUM [Concomitant]
     Active Substance: OPIUM
     Indication: Product used for unknown indication
     Route: 065

REACTIONS (13)
  - Drug dependence [Unknown]
  - Nasal necrosis [Unknown]
  - Pneumonia [Unknown]
  - Drug abuse [Unknown]
  - Nasal congestion [Unknown]
  - Nasal mucosal disorder [Unknown]
  - Nasal septum deviation [Unknown]
  - Nasal septum perforation [Unknown]
  - Chronic sinusitis [Unknown]
  - Poor quality sleep [Unknown]
  - Sinusitis [Unknown]
  - Nasal mucosa atrophy [Unknown]
  - Dyspnoea [Unknown]
